FAERS Safety Report 14832062 (Version 2)
Quarter: 2018Q2

REPORT INFORMATION
  Report Type: Spontaneous
  Country: DE (occurrence: DE)
  Receive Date: 20180501
  Receipt Date: 20180502
  Transmission Date: 20180711
  Serious: Yes (Hospitalization)
  Sender: FDA-Public Use
  Company Number: DE-CONCORDIA PHARMACEUTICALS INC.-E2B_00011446

PATIENT
  Age: 84 Year
  Sex: Female

DRUGS (15)
  1. FUROSEMID [Concomitant]
     Active Substance: FUROSEMIDE
     Dosage: 40 MG, 1-1-0-0
  2. PHENPROCOUMON [Concomitant]
     Active Substance: PHENPROCOUMON
     Dosage: 3 MG, NACH INR
  3. LYRICA [Concomitant]
     Active Substance: PREGABALIN
     Dosage: 75 MG, 1-0-1-0
  4. XIPAMID [Concomitant]
     Active Substance: XIPAMIDE
     Dosage: 10 MG, 1-1-0-0
  5. METAMIZOL [Concomitant]
     Active Substance: METAMIZOLE SODIUM
     Dosage: 500 MG, 1-1-1-0
  6. OMEPRAZOL [Concomitant]
     Active Substance: OMEPRAZOLE
     Dosage: 40 MG, 0-1-0-0
  7. FORMOTEROL [Concomitant]
     Active Substance: FORMOTEROL
     Dosage: NK ?G, 1-0-0-0
  8. TRAMADOL. [Concomitant]
     Active Substance: TRAMADOL
     Dosage: 20-20-20-20, TROPFEN
  9. PREDNISOLONE. [Suspect]
     Active Substance: PREDNISOLONE
     Dosage: 4 MG, 1-0-0-0
  10. INSULIN HUMAN ISOPHANE [Suspect]
     Active Substance: INSULIN HUMAN
     Dosage: NK
  11. ENOXAPARIN [Concomitant]
     Active Substance: ENOXAPARIN
     Dosage: 40 MG, 1-0-1-0
  12. SPIRIVA [Concomitant]
     Active Substance: TIOTROPIUM BROMIDE MONOHYDRATE
     Dosage: 18 ?G, 1-0-0-0
  13. INSULIN HUMAN [Suspect]
     Active Substance: INSULIN HUMAN
     Dosage: NK
  14. EBRANTIL [Concomitant]
     Active Substance: URAPIDIL
     Dosage: 60 MG, 1-0-0-0
  15. LISINOPRIL HYDROCHLOROTHIAZID [Concomitant]
     Dosage: 20|12.5 MG, 1-0-0-0

REACTIONS (2)
  - Hypoglycaemia [Unknown]
  - Somnolence [Unknown]
